FAERS Safety Report 7903962-0 (Version None)
Quarter: 2011Q4

REPORT INFORMATION
  Report Type: 
  Country: None (occurrence: None)
  Receive Date: 20111109
  Receipt Date: 20111026
  Transmission Date: 20120403
  Serious: No
  Sender: FDA-Public Use
  Company Number: US-B.I. PHARMACEUTICALS,INC./RIDGEFIELD-2011-BP-25845PF

PATIENT
  Age: 76 Year
  Sex: Female
  Weight: 69.09 kg

DRUGS (6)
  1. DIURETICS [Concomitant]
  2. ADCIRCA [Concomitant]
  3. SPIRIVA [Suspect]
     Route: 055
  4. ASPIRIN [Concomitant]
  5. TYVASO [Suspect]
     Indication: PULMONARY ARTERIAL HYPERTENSION
     Route: 055
     Dates: start: 20111004
  6. ADVAIR DISKUS 100/50 [Suspect]
     Route: 055

REACTIONS (4)
  - FATIGUE [None]
  - DIZZINESS [None]
  - ASTHENIA [None]
  - COUGH [None]
